FAERS Safety Report 4871639-4 (Version None)
Quarter: 2006Q1

REPORT INFORMATION
  Report Type: 
  Country: None (occurrence: None)
  Receive Date: 20060104
  Receipt Date: 20051228
  Transmission Date: 20060701
  Serious: Yes (Other)
  Sender: FDA-Public Use
  Company Number: PHEH2005US13899

PATIENT
  Age: 38 Year
  Sex: Female

DRUGS (1)
  1. FEMARA [Suspect]
     Indication: INFERTILITY
     Dosage: UNK, ONCE/SINGLE
     Route: 048
     Dates: start: 20051001, end: 20051001

REACTIONS (2)
  - ABORTION SPONTANEOUS [None]
  - DRUG EXPOSURE BEFORE PREGNANCY [None]
